FAERS Safety Report 4433517-4 (Version None)
Quarter: 2004Q3

REPORT INFORMATION
  Report Type: 
  Country: None (occurrence: None)
  Receive Date: 20040824
  Receipt Date: 20040809
  Transmission Date: 20050211
  Serious: No
  Sender: FDA-Public Use
  Company Number: 04P-062-0269991-00

PATIENT
  Age: 22 Year
  Sex: Male

DRUGS (1)
  1. VALPROATE SODIUM [Suspect]
     Indication: AFFECTIVE DISORDER
     Dosage: PER ORAL
     Route: 048
     Dates: start: 20020101

REACTIONS (2)
  - EPIGASTRIC DISCOMFORT [None]
  - LIPASE INCREASED [None]
